FAERS Safety Report 6433434-4 (Version None)
Quarter: 2009Q4

REPORT INFORMATION
  Report Type: 
  Country: None (occurrence: None)
  Receive Date: 20091106
  Receipt Date: 20091106
  Transmission Date: 20100525
  Serious: No
  Sender: FDA-Public Use
  Company Number: None

PATIENT
  Sex: Male
  Weight: 76.2043 kg

DRUGS (20)
  1. DIOVAN [Suspect]
     Indication: CARDIAC DISORDER
     Dosage: 1 TABLET DAILY PO
     Route: 048
     Dates: start: 20020128, end: 20091105
  2. POTASSIUM CHLORIDE [Suspect]
     Indication: CARDIAC DISORDER
     Dosage: 1 TABLET 2X DAILY PO
     Route: 048
     Dates: start: 20051229, end: 20091105
  3. AVODART [Concomitant]
  4. TERAZOSIN HCL [Concomitant]
  5. ALLOPURINOL [Concomitant]
  6. COREG [Concomitant]
  7. PLAVIX [Concomitant]
  8. FERROUS SULFATE TAB [Concomitant]
  9. NIASPAN [Concomitant]
  10. FOLIC ACID [Concomitant]
  11. FUROSEMIDE [Concomitant]
  12. ASPIRIN [Concomitant]
  13. METFORMIN HCL [Concomitant]
  14. AVANDIA [Concomitant]
  15. VITAMIN SUPPLEMENTS: FISH OIL [Concomitant]
  16. ASCORBIC ACID [Concomitant]
  17. CALCIUM [Concomitant]
  18. VITAMIN B COMPLEX CAP [Concomitant]
  19. MAGNESIUM [Concomitant]
  20. D-1000 [Concomitant]

REACTIONS (10)
  - ASTHENIA [None]
  - CONFUSIONAL STATE [None]
  - DIZZINESS [None]
  - FATIGUE [None]
  - GAIT DISTURBANCE [None]
  - HYPOAESTHESIA [None]
  - PARAESTHESIA [None]
  - QUALITY OF LIFE DECREASED [None]
  - SENSATION OF HEAVINESS [None]
  - VERTIGO [None]
